FAERS Safety Report 9216401 (Version 7)
Quarter: 2013Q3

REPORT INFORMATION
  Report Type: Report from Study
  Country: JP (occurrence: JP)
  Receive Date: 20130408
  Receipt Date: 20130920
  Transmission Date: 20140515
  Serious: Yes (Death, Other)
  Sender: FDA-Public Use
  Company Number: PHHY2013JP033184

PATIENT
  Age: 43 Year
  Sex: Female

DRUGS (10)
  1. LEPONEX / CLOZARIL [Suspect]
     Indication: SCHIZOPHRENIA, DISORGANISED TYPE
     Dosage: 12.5 MG, QD
     Route: 048
     Dates: start: 20130326, end: 20130403
  2. LEPONEX / CLOZARIL [Suspect]
     Dosage: 25 MG, QD
     Route: 048
     Dates: start: 20130327, end: 20130327
  3. LEPONEX / CLOZARIL [Suspect]
     Dosage: 50 MG, QD
     Route: 048
     Dates: start: 20130328, end: 20130401
  4. LEPONEX / CLOZARIL [Suspect]
     Dosage: 100 MG, QD
     Route: 048
     Dates: start: 20130402, end: 20130403
  5. HALOPERIDOL [Concomitant]
     Dosage: 18 MG, UNK
     Route: 048
     Dates: start: 20130326, end: 20130403
  6. ZOTEPINE [Concomitant]
     Dosage: 100 MG, UNK
     Route: 048
     Dates: start: 20130326
  7. ZOTEPINE [Concomitant]
     Dosage: 50 MG, UNK
     Route: 048
     Dates: end: 20130327
  8. CLOTIAPINE [Concomitant]
     Dosage: 750 MG, UNK
     Route: 048
     Dates: start: 20130326
  9. CLOTIAPINE [Concomitant]
     Dosage: 650 MG, UNK
     Route: 048
     Dates: end: 20130403
  10. LEVOFLOXACIN [Concomitant]
     Indication: PNEUMONIA
     Dosage: 500 MG, QD (FOR 7 DAYS)

REACTIONS (14)
  - Pulmonary infarction [Fatal]
  - Venous thrombosis [Fatal]
  - Myocardial ischaemia [Fatal]
  - Intentional self-injury [Not Recovered/Not Resolved]
  - Blood creatine phosphokinase increased [Not Recovered/Not Resolved]
  - Oxygen saturation decreased [Recovered/Resolved]
  - Dyspnoea [Recovered/Resolved]
  - Blood sodium decreased [Recovered/Resolved]
  - Haematocrit abnormal [Unknown]
  - Red blood cell count decreased [Unknown]
  - Haemoglobin decreased [Unknown]
  - Hypertension [Unknown]
  - Heart rate increased [Unknown]
  - Platelet count increased [Unknown]
